FAERS Safety Report 19374408 (Version 2)
Quarter: 2021Q2

REPORT INFORMATION
  Report Type: Report from Study
  Country: None (occurrence: NL)
  Receive Date: 20210603
  Receipt Date: 20210605
  Transmission Date: 20210717
  Serious: Yes (Death, Other)
  Sender: FDA-Public Use
  Company Number: NL-ABBVIE-21K-114-3932124-00

PATIENT
  Sex: Male

DRUGS (4)
  1. LEVODOPA/CARBIDOPA [Suspect]
     Active Substance: CARBIDOPA\LEVODOPA
     Dosage: MD: 2.2 ML CD: 2.8 ML/H ED: 0.0 ML
     Route: 050
  2. DORMICUM [Concomitant]
     Indication: PALLIATIVE SEDATION
     Dates: start: 20210530
  3. LEVODOPA/CARBIDOPA [Suspect]
     Active Substance: CARBIDOPA\LEVODOPA
     Indication: PARKINSON^S DISEASE
     Route: 050
     Dates: start: 20190411
  4. MORPHINE [Concomitant]
     Active Substance: MORPHINE
     Indication: PALLIATIVE SEDATION
     Dates: start: 20210530

REACTIONS (3)
  - Pneumonia [Recovered/Resolved]
  - Pneumonia aspiration [Fatal]
  - Palliative sedation [Unknown]
